FAERS Safety Report 13964338 (Version 2)
Quarter: 2017Q4

REPORT INFORMATION
  Report Type: Report from Study
  Country: US (occurrence: US)
  Receive Date: 20170913
  Receipt Date: 20171024
  Transmission Date: 20180320
  Serious: Yes (Hospitalization, Other)
  Sender: FDA-Public Use
  Company Number: US-GILEAD-2017-0292607

PATIENT
  Age: 49 Year
  Sex: Female
  Weight: 51 kg

DRUGS (22)
  1. SENSIPAR [Concomitant]
     Active Substance: CINACALCET HYDROCHLORIDE
  2. ATIVAN [Concomitant]
     Active Substance: LORAZEPAM
  3. HYDROMORPHONE [Concomitant]
     Active Substance: HYDROMORPHONE
  4. ADCIRCA [Concomitant]
     Active Substance: TADALAFIL
  5. RENVELA [Concomitant]
     Active Substance: SEVELAMER CARBONATE
  6. DIPHENHYDRAMINE. [Concomitant]
     Active Substance: DIPHENHYDRAMINE
  7. VIBRA-TABS                         /00055702/ [Concomitant]
  8. COMBIVENT [Concomitant]
     Active Substance: ALBUTEROL SULFATE\IPRATROPIUM BROMIDE
  9. AMBRISENTAN [Suspect]
     Active Substance: AMBRISENTAN
     Indication: VASCULITIS
     Dosage: 5 MG, QD
     Route: 048
     Dates: start: 201506
  10. AMBRISENTAN [Suspect]
     Active Substance: AMBRISENTAN
     Indication: SLEEP APNOEA SYNDROME
  11. LISINOPRIL. [Concomitant]
     Active Substance: LISINOPRIL
  12. CARVEDILOL. [Concomitant]
     Active Substance: CARVEDILOL
  13. ALBUTEROL                          /00139501/ [Concomitant]
     Active Substance: ALBUTEROL
  14. LACTULOSE. [Concomitant]
     Active Substance: LACTULOSE
  15. AMBRISENTAN [Suspect]
     Active Substance: AMBRISENTAN
     Indication: END STAGE RENAL DISEASE
  16. AMLODIPINE [Concomitant]
     Active Substance: AMLODIPINE BESYLATE
  17. CLONIDINE. [Concomitant]
     Active Substance: CLONIDINE
  18. MEGESTROL [Concomitant]
     Active Substance: MEGESTROL
  19. OMEPRAZOLE. [Concomitant]
     Active Substance: OMEPRAZOLE
  20. AMBRISENTAN [Suspect]
     Active Substance: AMBRISENTAN
     Indication: PULMONARY ARTERIAL HYPERTENSION
     Dosage: 5 MG, BID
     Route: 048
  21. MORPHINE [Concomitant]
     Active Substance: MORPHINE
  22. DULCOLAX (BISACODYL) [Concomitant]
     Active Substance: BISACODYL

REACTIONS (8)
  - Unevaluable event [Unknown]
  - Asthenia [Unknown]
  - Acute respiratory failure [Recovered/Resolved]
  - Ascites [Recovered/Resolved]
  - Off label use [Not Recovered/Not Resolved]
  - Dyspnoea [Recovering/Resolving]
  - Nausea [Unknown]
  - Pyrexia [Unknown]

NARRATIVE: CASE EVENT DATE: 20170828
